FAERS Safety Report 9519353 (Version 1)
Quarter: 2013Q1

REPORT INFORMATION
  Report Type: Spontaneous
  Country: US (occurrence: None)
  Receive Date: 20130305
  Receipt Date: 20130305
  Transmission Date: 20140127
  Serious: No
  Sender: FDA-Public Use
  Company Number: 163-21880-12110334

PATIENT
  Age: 81 Year
  Sex: Male

DRUGS (1)
  1. REVLIMID [Suspect]
     Indication: PLASMA CELL MYELOMA
     Dosage: MULTIPLE MYELOMA
     Route: 048
     Dates: start: 201210, end: 20121021

REACTIONS (4)
  - Abasia [None]
  - Confusional state [None]
  - Fatigue [None]
  - Change of bowel habit [None]
